FAERS Safety Report 9524064 (Version 1)
Quarter: 2013Q1

REPORT INFORMATION
  Report Type: Spontaneous
  Country: US (occurrence: None)
  Receive Date: 20130313
  Receipt Date: 20130313
  Transmission Date: 20140127
  Serious: No
  Sender: FDA-Public Use
  Company Number: 1000041254

PATIENT
  Age: 56 Year
  Sex: Female

DRUGS (13)
  1. SAVELLA (MILNACIPRAN HYDROCHLORIDE) (12.5 MILLIGRAM, TABLETS) [Suspect]
     Indication: FIBROMYALGIA
     Route: 048
     Dates: start: 20121030, end: 20121031
  2. SAVELLA (MILNACIPRAN HYDROCHLORIDE) (12.5 MILLIGRAM, TABLETS) [Suspect]
     Indication: NEUROPATHY PERIPHERAL
     Route: 048
     Dates: start: 20121030, end: 20121031
  3. SAVELLA (MILNACIPRAN HYDROCHLORIDE) (50 MILLIGRAM, TABLETS) [Suspect]
     Indication: FIBROMYALGIA
     Route: 048
     Dates: start: 20121113, end: 201211
  4. SAVELLA (MILNACIPRAN HYDROCHLORIDE) (50 MILLIGRAM, TABLETS) [Suspect]
     Indication: NEUROPATHY PERIPHERAL
     Route: 048
     Dates: start: 20121113, end: 201211
  5. HYDROCODONE (HYDROCODONE) (HYDROCODONE) [Concomitant]
  6. NEURONTIN (GABAPENTIN) (GABAPENTIN) [Concomitant]
  7. METHADONE (METHADONE) (METHADONE) [Concomitant]
  8. LEVOTHYROXINE (LEVOTHYROXINE SODIUM) (LEVOTHYROXINE SODIUM) [Concomitant]
  9. LISINOPRIL (LISINOPRIL) (LISINOPRIL) [Concomitant]
  10. CYMBALTA (DULOXETINE HYDROCHLORIDE) (DULOXETINE HYDROCHLORIDE) [Concomitant]
  11. METFORMIN (METFORMIN) (METFORMIN) [Concomitant]
  12. VITAMIN D (VITAMIN D) (VITAMIN D) [Concomitant]
  13. HYDROCHLOROTHIAZIDE (HYDROCHLOROTHIAZIDE) (HYDROCHLOROTHIAZIDE) [Concomitant]

REACTIONS (1)
  - Drug ineffective [None]
